FAERS Safety Report 25578239 (Version 1)
Quarter: 2025Q3

REPORT INFORMATION
  Report Type: Spontaneous
  Country: US (occurrence: US)
  Receive Date: 20250718
  Receipt Date: 20250718
  Transmission Date: 20251020
  Serious: Yes (Other)
  Sender: TORRENT PHARMA INC.
  Company Number: US-TORRENT-00014433

PATIENT
  Age: 75 Year
  Sex: Male

DRUGS (1)
  1. LURASIDONE [Suspect]
     Active Substance: LURASIDONE
     Indication: Bipolar disorder
     Route: 065

REACTIONS (4)
  - Chronic obstructive pulmonary disease [Unknown]
  - Dyspnoea exertional [Recovering/Resolving]
  - Extrapyramidal disorder [Not Recovered/Not Resolved]
  - Loss of personal independence in daily activities [Unknown]
